FAERS Safety Report 18251623 (Version 2)
Quarter: 2021Q4

REPORT INFORMATION
  Report Type: Report from Study
  Country: US (occurrence: US)
  Receive Date: 20200910
  Receipt Date: 20211224
  Transmission Date: 20220303
  Serious: No
  Sender: FDA-Public Use
  Company Number: US-NOVARTISTESTPH-NVSC2020US244088

PATIENT
  Sex: Female

DRUGS (6)
  1. COSENTYX [Suspect]
     Active Substance: SECUKINUMAB
     Indication: Psoriasis
     Dosage: 300 MG, QMO
     Route: 058
  2. COSENTYX [Suspect]
     Active Substance: SECUKINUMAB
     Indication: Psoriatic arthropathy
     Dosage: 300 MG, UNKNOWN
     Route: 058
  3. COSENTYX [Suspect]
     Active Substance: SECUKINUMAB
     Dosage: 300 MG, Q4W (EVERY 4 WEEKS)
     Route: 058
  4. VASELINE PURE [Concomitant]
     Active Substance: PETROLATUM
     Indication: Lip dry
     Dosage: UNK
     Route: 065
  5. COCONUT OIL [Concomitant]
     Active Substance: COCONUT OIL
     Indication: Lip dry
     Dosage: UNK
     Route: 065
  6. CETAPHIL DAILY FACIAL MOISTURIZER WITH SUNCREEN SPF 50 [Concomitant]
     Active Substance: OCTINOXATE\OCTISALATE\OCTOCRYLENE\OXYBENZONE\TITANIUM DIOXIDE
     Indication: Lip dry
     Dosage: UNK
     Route: 065

REACTIONS (7)
  - Noninfective gingivitis [Unknown]
  - Stomatitis [Unknown]
  - Glossodynia [Unknown]
  - Hyperkeratosis [Unknown]
  - Dermatitis atopic [Unknown]
  - Oral mucosal blistering [Unknown]
  - Irritable bowel syndrome [Unknown]
